FAERS Safety Report 8936494 (Version 1)
Quarter: 2012Q4

REPORT INFORMATION
  Report Type: 
  Country: JP (occurrence: JP)
  Receive Date: 20121130
  Receipt Date: 20121130
  Transmission Date: 20130627
  Serious: Yes (Death, Other)
  Sender: FDA-Public Use
  Company Number: JP-ASTRAZENECA-2012SE89573

PATIENT
  Age: 76 Year
  Sex: Male

DRUGS (1)
  1. OMEPRAL [Suspect]
     Dosage: Dose unknown
     Route: 048

REACTIONS (2)
  - Pneumonia [Fatal]
  - Erythema multiforme [Unknown]
